FAERS Safety Report 21264325 (Version 1)
Quarter: 2022Q3

REPORT INFORMATION
  Report Type: Spontaneous
  Country: US (occurrence: US)
  Receive Date: 20220829
  Receipt Date: 20220829
  Transmission Date: 20221026
  Serious: Yes (Hospitalization)
  Sender: FDA-Public Use
  Company Number: US-ORPHANEU-2022000470

PATIENT
  Age: 14 Year
  Sex: Male
  Weight: 65 kg

DRUGS (8)
  1. DACTINOMYCIN [Suspect]
     Active Substance: DACTINOMYCIN
     Indication: Product used for unknown indication
     Dosage: 0.05 MILLIGRAM/KILOGRAM, OVER 1-5 MINUTES ON DAY 1 OF CYCLES 1 AND 3
     Route: 042
  2. TEMSIROLIMUS [Suspect]
     Active Substance: TEMSIROLIMUS
     Indication: Product used for unknown indication
     Dosage: 15 MILLIGRAM/SQ. METER, OVER 30-60 MINUTES ON DAYS 1, 8, AND 15
     Route: 042
  3. TEMSIROLIMUS [Suspect]
     Active Substance: TEMSIROLIMUS
     Dosage: 15 MILLIGRAM/SQ. METER, OVER 30-60 MINUTES ON DAYS 1, 8, AND 15
     Route: 042
     Dates: start: 20160829, end: 20160926
  4. CAMPTOSAR [Suspect]
     Active Substance: IRINOTECAN HYDROCHLORIDE
     Indication: Product used for unknown indication
     Dosage: 50 MG/M2 OR PER DOSING TABLE OVER 90 MINUTES ON DAYS 1-5 OF CYCLES 2 AND 4
     Route: 042
  5. CAMPTOSAR [Suspect]
     Active Substance: IRINOTECAN HYDROCHLORIDE
     Dosage: 50MG/M2 OR PER DOSING TABLE OVER 90 MINUTES ON DAYS 1-5 OF CYCLES 2 AND 4
     Route: 042
     Dates: start: 20160912, end: 20160916
  6. VINCRISTINE SULFATE [Suspect]
     Active Substance: VINCRISTINE SULFATE
     Indication: Product used for unknown indication
     Dosage: 1.5 MG/M2 OR PER DOSING TABLE OVER 1 MINUTE OR INFUSION VIA MINIBAG ON DAYS 1, 8, AND 15
     Route: 042
  7. VINCRISTINE SULFATE [Suspect]
     Active Substance: VINCRISTINE SULFATE
     Dosage: 1.5 MG/M2 OR PER DOSING TABLE OVER 1 MINUTE OR INFUSION VIA MINIBAG ON DAYS 1, 8, AND 15
     Route: 042
     Dates: start: 20160912, end: 20160926
  8. CYCLOPHOSPHAMIDE [Suspect]
     Active Substance: CYCLOPHOSPHAMIDE
     Indication: Product used for unknown indication
     Dosage: 1200 MG/M2 OR PER DOSING TABLE OVER 60 MINUTES ON DAY 1 OF CYCLES 1 AND 3
     Route: 042

REACTIONS (1)
  - Stomatitis [Recovering/Resolving]

NARRATIVE: CASE EVENT DATE: 20160929
